FAERS Safety Report 4376152-9 (Version None)
Quarter: 2004Q2

REPORT INFORMATION
  Report Type: 
  Country: None (occurrence: None)
  Receive Date: 20040607
  Receipt Date: 20040524
  Transmission Date: 20050107
  Serious: Yes (Hospitalization)
  Sender: FDA-Public Use
  Company Number: 04P-167-0262128-00

PATIENT
  Age: 56 Year
  Sex: Female
  Weight: 60 kg

DRUGS (9)
  1. HUMIRA [Suspect]
     Indication: RHEUMATOID ARTHRITIS
     Dosage: 40 MG, 1 IN 2 WK, SUBCUTANEOUS
     Route: 058
     Dates: start: 20040201, end: 20040201
  2. PREDNISOLONE [Concomitant]
  3. ASPIRIN [Concomitant]
  4. CALCIUM CARBONATE [Concomitant]
  5. NITROFURANTOIN [Concomitant]
  6. NAPROXEN [Concomitant]
  7. CYANOCOBALAMIN [Concomitant]
  8. HRT [Concomitant]
  9. MORPHINE SULFATE [Concomitant]

REACTIONS (1)
  - ABSCESS LIMB [None]
